FAERS Safety Report 21163754 (Version 1)
Quarter: 2022Q3

REPORT INFORMATION
  Report Type: Spontaneous
  Country: CN (occurrence: CN)
  Receive Date: 20220803
  Receipt Date: 20220803
  Transmission Date: 20221027
  Serious: Yes (Other)
  Sender: FDA-Public Use
  Company Number: CN-SUN PHARMACEUTICAL INDUSTRIES LTD-2022R1-346640

PATIENT
  Age: 59 Year
  Sex: Male

DRUGS (4)
  1. CARBOPLATIN [Suspect]
     Active Substance: CARBOPLATIN
     Indication: Lung carcinoma cell type unspecified stage IV
     Dosage: 6 CYCLES
     Route: 065
     Dates: start: 202006, end: 202010
  2. PACLITAXEL [Suspect]
     Active Substance: PACLITAXEL
     Indication: Lung carcinoma cell type unspecified stage IV
     Dosage: 6 CYCLES
     Route: 065
     Dates: start: 202006, end: 202010
  3. SINTILIMAB [Suspect]
     Active Substance: SINTILIMAB
     Indication: Lung carcinoma cell type unspecified stage IV
     Dosage: 200 MILLIGRAM, Q3W
     Route: 065
     Dates: start: 202006, end: 202010
  4. SINTILIMAB [Suspect]
     Active Substance: SINTILIMAB
     Dosage: UNK
     Route: 065
     Dates: start: 202011

REACTIONS (1)
  - Type 2 diabetes mellitus [Recovering/Resolving]
